FAERS Safety Report 6692338-2 (Version None)
Quarter: 2010Q2

REPORT INFORMATION
  Report Type: 
  Country: None (occurrence: None)
  Receive Date: 20100422
  Receipt Date: 20100420
  Transmission Date: 20101027
  Serious: Yes (Hospitalization)
  Sender: FDA-Public Use
  Company Number: JP-BAYER-200910209BYL

PATIENT
  Age: 62 Year
  Sex: Male
  Weight: 60 kg

DRUGS (8)
  1. NEXAVAR [Suspect]
     Indication: RENAL CELL CARCINOMA
     Dosage: TOTAL DAILY DOSE: 800 MG  UNIT DOSE: 200 MG
     Route: 048
     Dates: start: 20090106, end: 20090119
  2. NEXAVAR [Suspect]
     Dosage: TOTAL DAILY DOSE: 400 MG  UNIT DOSE: 200 MG
     Route: 048
     Dates: start: 20090130, end: 20091007
  3. NEXAVAR [Suspect]
     Dosage: UNIT DOSE: 200 MG
     Route: 048
     Dates: start: 20091008, end: 20091217
  4. NEXAVAR [Suspect]
     Dosage: TOTAL DAILY DOSE: 600 MG  UNIT DOSE: 200 MG
     Route: 048
     Dates: start: 20100325
  5. NORVASC [Concomitant]
     Route: 048
     Dates: start: 20090105, end: 20090501
  6. CANDESARTAN CILEXETIL [Concomitant]
     Route: 048
     Dates: start: 20090217, end: 20090501
  7. FRANDOL [Concomitant]
     Route: 062
     Dates: start: 20090501
  8. SUTENT [Concomitant]
     Route: 048

REACTIONS (5)
  - DRUG ERUPTION [None]
  - HYPERTENSION [None]
  - LIVER DISORDER [None]
  - PALMAR-PLANTAR ERYTHRODYSAESTHESIA SYNDROME [None]
  - TYPE 2 DIABETES MELLITUS [None]
